FAERS Safety Report 18008193 (Version 1)
Quarter: 2020Q3

REPORT INFORMATION
  Report Type: Spontaneous
  Country: CN (occurrence: CN)
  Receive Date: 20200710
  Receipt Date: 20200710
  Transmission Date: 20201103
  Serious: Yes (Other)
  Sender: FDA-Public Use
  Company Number: CN-ACTELION-A-CH2020-206680

PATIENT

DRUGS (1)
  1. TRACLEER [Suspect]
     Active Substance: BOSENTAN
     Indication: COR PULMONALE CHRONIC
     Dosage: 62.5 MG, BID
     Route: 048

REACTIONS (4)
  - Arrhythmia [Unknown]
  - Shock [Unknown]
  - Disseminated intravascular coagulation [Unknown]
  - Hypoxic-ischaemic encephalopathy [Unknown]
